FAERS Safety Report 8066242-1 (Version None)
Quarter: 2012Q1

REPORT INFORMATION
  Report Type: 
  Country: None (occurrence: None)
  Receive Date: 20120117
  Receipt Date: 20120103
  Transmission Date: 20120608
  Serious: Yes (Other)
  Sender: FDA-Public Use
  Company Number: 2012-000040

PATIENT
  Sex: Female

DRUGS (6)
  1. ACTONEL [Suspect]
     Indication: OSTEOPOROSIS
     Dosage: 150 MG ONCE MONTHLY, ORAL
     Route: 048
  2. CALCIUM CARBONATE [Concomitant]
  3. CHEMOTHERAPEUTICS [Concomitant]
  4. ACTONEL [Suspect]
     Indication: OSTEOPOROSIS
     Dosage: 1 TABLET DAILY, ORAL ; 1 TABLET WEEKLY, ORAL
     Route: 048
  5. CHOLECALICIFEROL (COLECALCIFEROL) [Concomitant]
  6. ALL OTHER THERAPEUTIC PRODUCTS [Concomitant]

REACTIONS (1)
  - INTRACRANIAL ANEURYSM [None]
